FAERS Safety Report 8577418-9 (Version None)
Quarter: 2012Q3

REPORT INFORMATION
  Report Type: 
  Country: None (occurrence: None)
  Receive Date: 20120807
  Receipt Date: 20120806
  Transmission Date: 20120928
  Serious: Yes (Hospitalization)
  Sender: FDA-Public Use
  Company Number: IT-BAYER-2012-079546

PATIENT
  Age: 60 Year
  Sex: Male

DRUGS (6)
  1. ASPIRIN [Suspect]
     Dosage: UNK
     Dates: end: 20120720
  2. NEBIVOLOL HCL [Concomitant]
     Indication: HYPERTENSION
     Dosage: DAILY DOSE 5 MG
     Route: 048
     Dates: start: 20080720, end: 20120725
  3. ROSUVASTATIN [Concomitant]
     Indication: HYPERCHOLESTEROLAEMIA
     Dosage: DAILY DOSE 10 MG
     Route: 048
     Dates: start: 20070720, end: 20120725
  4. ALLOPURINOL [Concomitant]
     Indication: HYPERURICAEMIA
     Dosage: DAILY DOSE 300 MG
     Route: 048
     Dates: start: 20070720, end: 20120725
  5. RAMIPRIL [Concomitant]
     Indication: HYPERTENSION
     Dosage: DAILY DOSE 5 MG
     Route: 048
     Dates: start: 20070720, end: 20120725
  6. TICLID [Suspect]
     Indication: PLATELET AGGREGATION INHIBITION
     Dosage: DAILY DOSE 250 MG
     Route: 048
     Dates: start: 20120720, end: 20120724

REACTIONS (3)
  - GASTRIC ULCER [None]
  - PRESYNCOPE [None]
  - FAECES DISCOLOURED [None]
